FAERS Safety Report 9838103 (Version 1)
Quarter: 2014Q1

REPORT INFORMATION
  Report Type: Spontaneous
  Country: GB (occurrence: GB)
  Receive Date: 20140123
  Receipt Date: 20140123
  Transmission Date: 20141002
  Serious: Yes (Life-Threatening, Hospitalization)
  Sender: FDA-Public Use
  Company Number: GB-WATSON-2014-00331

PATIENT
  Age: 82 Year
  Sex: Male
  Weight: 100 kg

DRUGS (11)
  1. LISINOPRIL (UNKNOWN) [Suspect]
     Indication: HYPERTENSION
     Dosage: 20 MG BID, UNKNOWN START DATE, STARTED BY GP
     Route: 048
     Dates: end: 20131218
  2. ASPIRIN [Concomitant]
     Indication: HYPERTENSION
     Dosage: 75 MG DAILY, STARTED BY GP
     Route: 048
  3. DILTIAZEM [Concomitant]
     Indication: ANGINA PECTORIS
     Dosage: 300 MG DAILY, STARTED BY GP
     Route: 048
  4. FLUVASTATIN [Concomitant]
     Indication: HYPERCHOLESTEROLAEMIA
     Dosage: 40 MG DAILY, STARTED BY GP.
     Route: 048
  5. NICORANDIL [Concomitant]
     Indication: ANGINA PECTORIS
     Dosage: 10 MG BID, STARTED BY GP.
     Route: 048
  6. NOVOMIX [Concomitant]
     Indication: DIABETES MELLITUS
     Dosage: UNK, VARIABLE, STARTED BY GP.
     Route: 058
  7. METFORMIN [Concomitant]
     Indication: DIABETES MELLITUS
     Dosage: 500 MG, BID
     Route: 048
  8. FUROSEMIDE [Concomitant]
     Indication: CARDIAC FAILURE CONGESTIVE
     Dosage: 40 MG, DAILY
     Route: 048
  9. DOXAZOSIN [Concomitant]
     Indication: HYPERTENSION
     Dosage: 4 MG, BID
     Route: 048
  10. AMITRIPTYLINE [Concomitant]
     Indication: PRODUCT USED FOR UNKNOWN INDICATION
     Dosage: UNK
     Route: 048
  11. OMEPRAZOLE [Concomitant]
     Indication: GASTROOESOPHAGEAL REFLUX DISEASE
     Dosage: 20 MG, UNKNOWN
     Route: 048

REACTIONS (2)
  - Angioedema [Recovering/Resolving]
  - Obstructive airways disorder [Recovering/Resolving]
